FAERS Safety Report 10206573 (Version 6)
Quarter: 2016Q1

REPORT INFORMATION
  Report Type: Spontaneous
  Country: US (occurrence: US)
  Receive Date: 20140530
  Receipt Date: 20160316
  Transmission Date: 20160525
  Serious: Yes (Hospitalization, Other)
  Sender: FDA-Public Use
  Company Number: US-GLAXOSMITHKLINE-A1042159A

PATIENT
  Sex: Female

DRUGS (6)
  1. FLOLAN [Suspect]
     Active Substance: EPOPROSTENOL SODIUM
     Dosage: UNK
     Dates: start: 19990723
  2. FLOLAN [Suspect]
     Active Substance: EPOPROSTENOL SODIUM
     Indication: PULMONARY ARTERIAL HYPERTENSION
     Dosage: DOSE: 73 NG/KG/MINCONCENTRATION: 105,000 NG/MLVIAL STRENGTH: 1.5 MGPUMP RATE: 88ML/DAY
     Route: 042
     Dates: start: 19990723
  3. ADCIRCA [Suspect]
     Active Substance: TADALAFIL
     Indication: PRODUCT USED FOR UNKNOWN INDICATION
  4. COUMADIN [Concomitant]
     Active Substance: WARFARIN SODIUM
  5. FLOLAN [Suspect]
     Active Substance: EPOPROSTENOL SODIUM
     Dosage: 77 NG/KG/MIN CONTINUOUS
     Dates: start: 19991111
  6. REVATIO [Concomitant]
     Active Substance: SILDENAFIL CITRATE

REACTIONS (9)
  - Infusion site pruritus [Not Recovered/Not Resolved]
  - Aortic surgery [Unknown]
  - Catheter site erythema [Unknown]
  - Dyspnoea [Unknown]
  - Cardiac failure congestive [Unknown]
  - Catheter site pruritus [Unknown]
  - Lung transplant [Unknown]
  - Infusion site erythema [Not Recovered/Not Resolved]
  - Drug intolerance [Unknown]
